FAERS Safety Report 8384449-0 (Version None)
Quarter: 2012Q2

REPORT INFORMATION
  Report Type: 
  Country: None (occurrence: None)
  Receive Date: 20120524
  Receipt Date: 20120522
  Transmission Date: 20120825
  Serious: Yes (Hospitalization)
  Sender: FDA-Public Use
  Company Number: GB-GLAXOSMITHKLINE-B0760549B

PATIENT
  Sex: Female

DRUGS (16)
  1. LAPATINIB [Suspect]
     Indication: BREAST CANCER METASTATIC
     Dosage: 1000MG PER DAY
     Route: 048
     Dates: start: 20111020
  2. LEVOFLOXACIN [Concomitant]
     Indication: ANTIBIOTIC PROPHYLAXIS
     Dates: start: 20111024
  3. DOCETAXEL [Suspect]
     Indication: BREAST CANCER METASTATIC
     Dosage: 60MGM2 EVERY 3 WEEKS
     Route: 042
     Dates: start: 20111020
  4. BENDROFLUAZIDE [Concomitant]
     Indication: HYPERTENSION
  5. BECLOMETHASONE DIPROPIONATE [Concomitant]
     Indication: ASTHMA
     Dates: start: 19880101
  6. PEGFILGRASTIM [Concomitant]
     Dates: start: 20111021
  7. FLUCONAZOLE [Concomitant]
     Indication: ANTIFUNGAL PROPHYLAXIS
     Dates: start: 20111024
  8. ALBUTEROL [Concomitant]
     Indication: ASTHMA
     Dates: start: 19880101
  9. DOMPERIDONE [Concomitant]
     Indication: PROPHYLAXIS
     Dates: start: 20111020
  10. SUDOCREM [Concomitant]
     Indication: RASH
     Dates: start: 20111105
  11. LOPERAMIDE [Concomitant]
     Indication: PROPHYLAXIS
     Dates: start: 20111021
  12. ACETAMINOPHEN [Concomitant]
     Indication: PAIN
     Dates: start: 20111021
  13. HEALTH SUPPLEMENT [Concomitant]
     Dates: start: 20111120
  14. LANSOPRAZOLE [Concomitant]
     Dates: start: 20111025
  15. GRANISETRON [Concomitant]
     Indication: PROPHYLAXIS
     Dates: start: 20111020
  16. DEXAMETHASONE [Concomitant]
     Indication: PROPHYLAXIS
     Dates: start: 20111019

REACTIONS (6)
  - RESPIRATORY FAILURE [None]
  - SMALL INTESTINAL OBSTRUCTION [None]
  - INGUINAL HERNIA STRANGULATED [None]
  - PULMONARY OEDEMA [None]
  - CLOSTRIDIAL INFECTION [None]
  - PNEUMONIA [None]
